FAERS Safety Report 5663771-2 (Version None)
Quarter: 2008Q1

REPORT INFORMATION
  Report Type: 
  Country: None (occurrence: None)
  Receive Date: 20080311
  Receipt Date: 20080227
  Transmission Date: 20080703
  Serious: Yes (Death, Hospitalization)
  Sender: FDA-Public Use
  Company Number: 2008US000639

PATIENT
  Age: 63 Year
  Sex: Female

DRUGS (1)
  1. PROGRAF [Suspect]
     Indication: DRUG USE FOR UNKNOWN INDICATION
     Dates: end: 20080120

REACTIONS (1)
  - RESPIRATORY FAILURE [None]
